FAERS Safety Report 25630908 (Version 1)
Quarter: 2025Q3

REPORT INFORMATION
  Report Type: Report from Study
  Country: CL (occurrence: CL)
  Receive Date: 20250801
  Receipt Date: 20250801
  Transmission Date: 20251020
  Serious: Yes (Death, Hospitalization)
  Sender: ROCHE
  Company Number: CL-ROCHE-10000326432

PATIENT
  Age: 74 Year
  Sex: Female

DRUGS (1)
  1. HERCEPTIN [Suspect]
     Active Substance: TRASTUZUMAB
     Indication: HER2 positive breast cancer
     Dosage: 25/JUN/2025: LAST HERCEPTIN C51
     Route: 058
     Dates: start: 2023

REACTIONS (2)
  - Fall [Unknown]
  - Hip fracture [Fatal]

NARRATIVE: CASE EVENT DATE: 20250627
